FAERS Safety Report 4418732-8 (Version None)
Quarter: 2004Q3

REPORT INFORMATION
  Report Type: 
  Country: None (occurrence: None)
  Receive Date: 20040809
  Receipt Date: 20040105
  Transmission Date: 20050211
  Serious: Yes (Hospitalization)
  Sender: FDA-Public Use
  Company Number: US-GLAXOSMITHKLINE-A0491347A

PATIENT
  Age: 17 Year
  Sex: Female

DRUGS (2)
  1. PAXIL [Suspect]
  2. ZITHROMAX [Suspect]

REACTIONS (1)
  - HEPATIC ENZYME INCREASED [None]
